FAERS Safety Report 13949163 (Version 1)
Quarter: 2017Q3

REPORT INFORMATION
  Report Type: Report from Study
  Country: SE (occurrence: SE)
  Receive Date: 20170908
  Receipt Date: 20170908
  Transmission Date: 20171128
  Serious: Yes (Death)
  Sender: FDA-Public Use
  Company Number: SE-TEVA-803095ROM

PATIENT
  Age: 60 Year
  Sex: Female

DRUGS (4)
  1. LITHIUM. [Suspect]
     Active Substance: LITHIUM
     Route: 065
  2. PERPHENAZINE. [Concomitant]
     Active Substance: PERPHENAZINE
     Route: 065
  3. LEVOMEPROMAZINE [Concomitant]
     Active Substance: LEVOMEPROMAZINE
     Route: 065
  4. CITALOPRAM [Suspect]
     Active Substance: CITALOPRAM HYDROBROMIDE
     Route: 065

REACTIONS (5)
  - Hypervolaemia [Fatal]
  - Pulmonary congestion [Fatal]
  - Toxicity to various agents [Fatal]
  - Cardiomegaly [Fatal]
  - Pulmonary oedema [Fatal]
